FAERS Safety Report 21751227 (Version 2)
Quarter: 2023Q1

REPORT INFORMATION
  Report Type: Report from Study
  Country: US (occurrence: US)
  Receive Date: 20221220
  Receipt Date: 20230130
  Transmission Date: 20230418
  Serious: Yes (Other)
  Sender: FDA-Public Use
  Company Number: US-ABBVIE-4241639

PATIENT
  Sex: Male

DRUGS (1)
  1. IMBRUVICA [Suspect]
     Active Substance: IBRUTINIB
     Indication: Chronic lymphocytic leukaemia
     Dosage: FORM STRENGTH: 420 MILLIGRAM
     Route: 048
     Dates: start: 20220920

REACTIONS (6)
  - Prostate cancer [Unknown]
  - Urinary retention [Unknown]
  - Prostate cancer recurrent [Unknown]
  - Cystitis [Unknown]
  - Prostatic disorder [Unknown]
  - Renal pain [Unknown]
